FAERS Safety Report 6653190-4 (Version None)
Quarter: 2010Q1

REPORT INFORMATION
  Report Type: 
  Country: None (occurrence: None)
  Receive Date: 20100326
  Receipt Date: 20100318
  Transmission Date: 20100710
  Serious: Yes (Life-Threatening, Hospitalization)
  Sender: FDA-Public Use
  Company Number: FR-BRISTOL-MYERS SQUIBB COMPANY-15025760

PATIENT
  Age: 82 Year
  Sex: Female

DRUGS (6)
  1. ELISOR TABS [Suspect]
  2. ALDACTONE [Suspect]
     Dosage: TABS
     Dates: end: 20090803
  3. COVERSYL [Suspect]
     Dosage: TABS
     Dates: end: 20090803
  4. SECTRAL [Suspect]
     Dosage: TABS
  5. PLAVIX [Suspect]
  6. LEVOTHYROX [Suspect]
     Dosage: TABS

REACTIONS (2)
  - HYPERKALAEMIA [None]
  - RENAL FAILURE ACUTE [None]
